FAERS Safety Report 4868690-7 (Version None)
Quarter: 2005Q4

REPORT INFORMATION
  Report Type: 
  Country: None (occurrence: None)
  Receive Date: 20051223
  Receipt Date: 20051215
  Transmission Date: 20060501
  Serious: Yes (Other)
  Sender: FDA-Public Use
  Company Number: 2005121682

PATIENT
  Age: 26 Year
  Sex: Female

DRUGS (5)
  1. ZMAX [Suspect]
     Indication: SINUSITIS BACTERIAL
     Dosage: (2 GRAM,)
     Dates: start: 20050812
  2. ZYRTEC-D 12 HOUR [Suspect]
     Indication: SINUSITIS
     Dates: start: 20050809
  3. MAXALT [Concomitant]
  4. TRAZODONE HCL [Concomitant]
  5. FLONASE [Concomitant]

REACTIONS (3)
  - DIARRHOEA [None]
  - HYPERSENSITIVITY [None]
  - VOMITING [None]
